FAERS Safety Report 17734811 (Version 1)
Quarter: 2020Q2

REPORT INFORMATION
  Report Type: Spontaneous
  Country: NL (occurrence: NL)
  Receive Date: 20200501
  Receipt Date: 20200501
  Transmission Date: 20200714
  Serious: Yes (Other)
  Sender: FDA-Public Use
  Company Number: NL-TEVA-2020-NL-1228799

PATIENT
  Age: 33 Year
  Sex: Female
  Weight: 69 kg

DRUGS (6)
  1. VITAMINE B COMPLEX [Concomitant]
     Active Substance: CYANOCOBALAMIN\PYRIDOXINE HYDROCHLORIDE\RIBOFLAVIN\SODIUM PANTOTHENATE\THIAMINE HYDROCHLORIDE\VITAMIN B COMPLEX
     Dosage: THERAPY START AND END  DATE ASKED BUT UNKNOWN
  2. VITAMINE C [Concomitant]
     Active Substance: ASCORBIC ACID
     Dosage: THERAPY START AND END  DATE ASKED BUT UNKNOWN
  3. VITAMINE D [Concomitant]
     Active Substance: CHOLECALCIFEROL
     Dosage: THERAPY START AND END  DATE ASKED BUT UNKNOWN
  4. ZOMIG (ZOLMITRIPTAN) [Concomitant]
     Dosage: ENVELOPED TABLET, 2.5 MG (MILLIGRAMS)? THERAPY START AND END  DATE ASKED BUT UNKNOWN
  5. PROPRANOLOL [Suspect]
     Active Substance: PROPRANOLOL HYDROCHLORIDE
     Indication: MIGRAINE
     Dosage: 1X A DAY AT THE END OF DECEMBER 2019/ EARLY JANUARY 2020, THE DOSE WAS INCREASED TO 120MG PER DAY
     Dates: start: 201908, end: 20200325
  6. MAGNESIUM [Concomitant]
     Active Substance: MAGNESIUM
     Dosage: THERAPY START AND END  DATE ASKED BUT UNKNOWN

REACTIONS (6)
  - Eye haemorrhage [Unknown]
  - Blepharospasm [Recovering/Resolving]
  - Fatigue [Unknown]
  - Feeling cold [Unknown]
  - Dry eye [Unknown]
  - Halo vision [Unknown]

NARRATIVE: CASE EVENT DATE: 20200201
